FAERS Safety Report 20836060 (Version 1)
Quarter: 2022Q2

REPORT INFORMATION
  Report Type: Spontaneous
  Country: None (occurrence: GB)
  Receive Date: 20220516
  Receipt Date: 20220516
  Transmission Date: 20220721
  Serious: Yes (Other)
  Sender: FDA-Public Use
  Company Number: GB-Ascend Therapeutics US, LLC-2128836

PATIENT
  Age: 6 Month

DRUGS (4)
  1. ESTROGEL [Suspect]
     Active Substance: ESTRADIOL
     Indication: Product used for unknown indication
     Route: 063
     Dates: start: 20220209
  2. ESTROGEL [Suspect]
     Active Substance: ESTRADIOL
  3. ESTRADIOL [Suspect]
     Active Substance: ESTRADIOL
     Route: 063
     Dates: start: 20220209
  4. NORETHINDRONE [Suspect]
     Active Substance: NORETHINDRONE
     Route: 063
     Dates: start: 20220209

REACTIONS (5)
  - Crying [Unknown]
  - Sleep disorder [Unknown]
  - Infant irritability [Unknown]
  - Abnormal behaviour [Unknown]
  - Maternal exposure during breast feeding [Unknown]
